FAERS Safety Report 16507849 (Version 3)
Quarter: 2019Q3

REPORT INFORMATION
  Report Type: Report from Study
  Country: CA (occurrence: CA)
  Receive Date: 20190701
  Receipt Date: 20190808
  Transmission Date: 20191004
  Serious: Yes (Hospitalization, Other)
  Sender: FDA-Public Use
  Company Number: CA-GLAXOSMITHKLINE-CA2019AMR113889

PATIENT
  Age: 82 Year
  Sex: Female

DRUGS (1)
  1. MEPOLIZUMAB [Suspect]
     Active Substance: MEPOLIZUMAB
     Indication: ASTHMA
     Dosage: 100 MG, Z (MONTHLY)
     Route: 042
     Dates: start: 20180108

REACTIONS (5)
  - Product dose omission [Unknown]
  - Fall [Unknown]
  - Cough [Unknown]
  - Intracranial haematoma [Recovering/Resolving]
  - Brain operation [Unknown]

NARRATIVE: CASE EVENT DATE: 201905
